FAERS Safety Report 21661627 (Version 1)
Quarter: 2022Q4

REPORT INFORMATION
  Report Type: Spontaneous
  Country: DE (occurrence: DE)
  Receive Date: 20221130
  Receipt Date: 20221130
  Transmission Date: 20230113
  Serious: Yes (Hospitalization, Other)
  Sender: FDA-Public Use
  Company Number: None

PATIENT
  Age: 69 Year
  Sex: Female

DRUGS (15)
  1. RAMIPRIL [Suspect]
     Active Substance: RAMIPRIL
     Indication: Product used for unknown indication
     Dosage: 5 MG, 1-0-0-0
  2. NEBIVOLOL [Suspect]
     Active Substance: NEBIVOLOL
     Indication: Product used for unknown indication
     Dosage: 2.5 MG, 1-0-0-0
  3. GLYCOPYRROLATE\INDACATEROL MALEATE [Concomitant]
     Active Substance: GLYCOPYRROLATE\INDACATEROL MALEATE
     Dosage: 85/43 MICROGRAM, 1-0-0-0
  4. PANTOPRAZOLE [Concomitant]
     Active Substance: PANTOPRAZOLE
     Dosage: 40 MG, 1-0-0-0
  5. IPRATROPIUM BROMIDE [Concomitant]
     Active Substance: IPRATROPIUM BROMIDE
     Dosage: 1-1-1-1
  6. ALBUTEROL [Concomitant]
     Active Substance: ALBUTEROL
     Dosage: AS REQUIRED
  7. FOLIC ACID [Concomitant]
     Active Substance: FOLIC ACID
     Dosage: 5 MG, 1-0-0-0
  8. INSULIN DETEMIR [Concomitant]
     Active Substance: INSULIN DETEMIR
     Dosage: SCHEME
  9. ATORVASTATIN [Concomitant]
     Active Substance: ATORVASTATIN
     Dosage: 40 MG, 0-0-1-0
  10. ASPIRIN [Concomitant]
     Active Substance: ASPIRIN
     Dosage: 100 MG, 1-0-0-0
  11. SITAGLIPTIN [Concomitant]
     Active Substance: SITAGLIPTIN
     Dosage: 50 MG, 1-0-0-0
  12. AMLODIPINE [Concomitant]
     Active Substance: AMLODIPINE BESYLATE
     Dosage: 10 MG, 1-0-0-0
  13. MOXIFLOXACIN [Concomitant]
     Active Substance: MOXIFLOXACIN
     Dosage: 1-0-0-0
  14. TORSEMIDE [Concomitant]
     Active Substance: TORSEMIDE
     Dosage: 20 MG, 1-0-0-0
  15. EISEN [Concomitant]
     Dosage: 1-0-0-0

REACTIONS (13)
  - Muscular weakness [Unknown]
  - Systemic infection [Unknown]
  - Condition aggravated [Unknown]
  - Anaemia [Unknown]
  - Dyspnoea [Unknown]
  - Acute respiratory failure [Unknown]
  - Wheezing [Unknown]
  - Electrolyte imbalance [Unknown]
  - General physical health deterioration [Unknown]
  - Upper respiratory tract irritation [Unknown]
  - Renal impairment [Unknown]
  - Oedema peripheral [Unknown]
  - Tachypnoea [Unknown]
